FAERS Safety Report 7801589-2 (Version None)
Quarter: 2011Q4

REPORT INFORMATION
  Report Type: 
  Country: None (occurrence: None)
  Receive Date: 20111006
  Receipt Date: 20111006
  Transmission Date: 20120403
  Serious: Yes (Hospitalization)
  Sender: FDA-Public Use
  Company Number: None

PATIENT
  Age: 49 Year
  Sex: Female
  Weight: 81.8 kg

DRUGS (8)
  1. FLAGYL [Concomitant]
  2. LEVAQUIN [Concomitant]
  3. VIT D [Concomitant]
  4. ZYRTEC [Concomitant]
  5. MORPHINE [Suspect]
     Indication: PROCEDURAL PAIN
     Dosage: VARIOUS PRN IV RECENT
     Route: 042
  6. DILAUDID [Suspect]
     Indication: PROCEDURAL PAIN
     Dosage: RECENT
  7. CALCIUM + VIT D [Concomitant]
  8. TORADOL [Suspect]
     Indication: PROCEDURAL PAIN
     Dosage: 30 Q 6H PRN IV RECENT

REACTIONS (1)
  - HYPERSENSITIVITY [None]
